FAERS Safety Report 7551112-5 (Version None)
Quarter: 2011Q2

REPORT INFORMATION
  Report Type: 
  Country: None (occurrence: None)
  Receive Date: 20110616
  Receipt Date: 20110608
  Transmission Date: 20111010
  Serious: Yes (Other)
  Sender: FDA-Public Use
  Company Number: FI-TEVA-285485ISR

PATIENT

DRUGS (1)
  1. COPAXONE [Suspect]
     Route: 058
     Dates: end: 20091201

REACTIONS (2)
  - NECROSIS [None]
  - SKIN DISORDER [None]
